FAERS Safety Report 23808518 (Version 2)
Quarter: 2024Q2

REPORT INFORMATION
  Report Type: Spontaneous
  Country: PL (occurrence: PL)
  Receive Date: 20240502
  Receipt Date: 20240525
  Transmission Date: 20240715
  Serious: Yes (Other)
  Sender: FDA-Public Use
  Company Number: PL-GILEAD-2024-0670920

PATIENT
  Age: 65 Year
  Sex: Male

DRUGS (8)
  1. VENETOCLAX [Suspect]
     Active Substance: VENETOCLAX
     Indication: Product used for unknown indication
     Dosage: UNKNOWN
     Route: 048
     Dates: start: 20230419
  2. CEFTRIAXONE [Concomitant]
     Active Substance: CEFTRIAXONE\CEFTRIAXONE SODIUM
     Indication: Product used for unknown indication
  3. AMBISOME [Suspect]
     Active Substance: AMPHOTERICIN B
     Indication: Pneumonia fungal
     Dosage: 200 MG (3 MG/KG)/THERAPY END DATE: 2023
     Route: 042
     Dates: start: 20230412
  4. AMBISOME [Suspect]
     Active Substance: AMPHOTERICIN B
     Indication: Pneumonia fungal
     Dosage: UNK
     Route: 042
     Dates: start: 20230525
  5. VANCOMYCIN [Concomitant]
     Active Substance: VANCOMYCIN
     Indication: Product used for unknown indication
  6. CASPOFUNGIN [Concomitant]
     Active Substance: CASPOFUNGIN
     Indication: Product used for unknown indication
     Dosage: UNK
     Dates: start: 20230428
  7. COTRIMOXAZOLE [Concomitant]
     Active Substance: SULFAMETHOXAZOLE\TRIMETHOPRIM
     Indication: Product used for unknown indication
  8. AZACITIDINE [Suspect]
     Active Substance: AZACITIDINE
     Indication: Product used for unknown indication
     Route: 065

REACTIONS (3)
  - Diarrhoea haemorrhagic [Recovered/Resolved]
  - Drug interaction [Recovered/Resolved]
  - Acute myeloid leukaemia (in remission) [Unknown]

NARRATIVE: CASE EVENT DATE: 20230401
